FAERS Safety Report 8804452 (Version 1)
Quarter: 2012Q4

REPORT INFORMATION
  Report Type: 
  Country: US (occurrence: US)
  Receive Date: 20120924
  Receipt Date: 20120924
  Transmission Date: 20130627
  Serious: Yes (Hospitalization, Other)
  Sender: FDA-Public Use
  Company Number: US-009507513-2010SP062564

PATIENT

DRUGS (1)
  1. NUVARING [Suspect]
     Indication: CONTRACEPTION
     Dates: start: 2004, end: 2008

REACTIONS (34)
  - Suicidal ideation [Unknown]
  - Cervical dysplasia [Unknown]
  - Ovarian cyst [Unknown]
  - Loss of consciousness [Recovered/Resolved]
  - Osteoarthritis [Recovering/Resolving]
  - Pulmonary embolism [Recovered/Resolved]
  - Deep vein thrombosis [Recovered/Resolved]
  - Hypertension [Unknown]
  - Arthropathy [Recovered/Resolved]
  - Blood cholesterol increased [Unknown]
  - Hyperlipidaemia [Unknown]
  - Bronchitis [Unknown]
  - Anxiety [Unknown]
  - Irritable bowel syndrome [Unknown]
  - Otitis media [Unknown]
  - Gastroenteritis [Unknown]
  - Incisional hernia [Unknown]
  - Uterine enlargement [Unknown]
  - Uterine leiomyoma [Unknown]
  - Endocrine toxicity [Unknown]
  - Ligament sprain [Unknown]
  - Tooth abscess [Unknown]
  - Incorrect drug administration duration [Unknown]
  - Muscle twitching [Recovered/Resolved]
  - Hypoaesthesia oral [Recovered/Resolved]
  - Sinusitis [Unknown]
  - Eczema [Unknown]
  - Oedema peripheral [Not Recovered/Not Resolved]
  - Device expulsion [Unknown]
  - Depression [Unknown]
  - Weight increased [Unknown]
  - Tension headache [Unknown]
  - Migraine [Unknown]
  - Cervical dysplasia [Unknown]
